FAERS Safety Report 5208277-X (Version None)
Quarter: 2006Q4

REPORT INFORMATION
  Report Type: 
  Country: None (occurrence: None)
  Receive Date: 20061027
  Receipt Date: 20051003
  Transmission Date: 20070319
  Serious: Yes (Other)
  Sender: FDA-Public Use
  Company Number: HQWYE923607OCT05

PATIENT
  Sex: Female

DRUGS (6)
  1. PREMARIN [Suspect]
     Indication: MENOPAUSAL SYMPTOMS
  2. ESTRACE [Suspect]
  3. ESTRADIOL [Suspect]
  4. ESTROPIPATE [Suspect]
  5. MEDROXYPROGESTERONE [Suspect]
  6. PROVERA [Suspect]

REACTIONS (1)
  - BREAST CANCER [None]
